FAERS Safety Report 20670509 (Version 1)
Quarter: 2022Q2

REPORT INFORMATION
  Report Type: Spontaneous
  Country: US (occurrence: US)
  Receive Date: 20220404
  Receipt Date: 20220404
  Transmission Date: 20220721
  Serious: Yes (Hospitalization)
  Sender: FDA-Public Use
  Company Number: US-BRISTOL-MYERS SQUIBB COMPANY-2022-013198

PATIENT
  Age: 42 Year
  Sex: Female
  Weight: 63.3 kg

DRUGS (40)
  1. REVLIMID [Suspect]
     Active Substance: LENALIDOMIDE
     Indication: Plasma cell myeloma
     Dosage: 21 DAYS, 7 DAYS OFF
     Route: 048
     Dates: start: 20150612, end: 20151030
  2. REVLIMID [Suspect]
     Active Substance: LENALIDOMIDE
     Dosage: DAYS 5, 6, 7, 8
     Route: 048
     Dates: start: 20151120, end: 20160105
  3. REVLIMID [Suspect]
     Active Substance: LENALIDOMIDE
     Dosage: 21 DAYS, 7 DAYS OFF
     Route: 048
     Dates: start: 20160416, end: 20160426
  4. REVLIMID [Suspect]
     Active Substance: LENALIDOMIDE
     Dosage: 28 DAYS CONTINUOUS
     Route: 048
     Dates: start: 20200227, end: 20201001
  5. DECADRON [Concomitant]
     Active Substance: DEXAMETHASONE
     Indication: Product used for unknown indication
     Route: 048
     Dates: start: 20141215, end: 20150612
  6. DECADRON [Concomitant]
     Active Substance: DEXAMETHASONE
     Dosage: Q 28 DAYS
     Route: 048
     Dates: start: 20201204, end: 20210723
  7. DECADRON [Concomitant]
     Active Substance: DEXAMETHASONE
     Route: 048
     Dates: start: 20150612, end: 20151030
  8. DECADRON [Concomitant]
     Active Substance: DEXAMETHASONE
     Route: 048
     Dates: start: 20151120, end: 20160105
  9. DECADRON [Concomitant]
     Active Substance: DEXAMETHASONE
     Route: 048
     Dates: start: 20160316, end: 20160426
  10. DECADRON [Concomitant]
     Active Substance: DEXAMETHASONE
     Route: 048
     Dates: start: 20200507, end: 20201001
  11. DECADRON [Concomitant]
     Active Substance: DEXAMETHASONE
     Route: 048
     Dates: start: 20200312, end: 20200423
  12. DECADRON [Concomitant]
     Active Substance: DEXAMETHASONE
     Route: 048
     Dates: start: 20190107, end: 20190304
  13. VELCADE [Concomitant]
     Active Substance: BORTEZOMIB
     Indication: Product used for unknown indication
     Dosage: 2 DOSE WEEKLY
     Route: 058
     Dates: start: 20141215, end: 20150612
  14. VELCADE [Concomitant]
     Active Substance: BORTEZOMIB
     Dosage: DAYS 1 3 7 11
     Route: 058
     Dates: start: 20220118, end: 20220128
  15. VELCADE [Concomitant]
     Active Substance: BORTEZOMIB
     Route: 058
     Dates: start: 20150612, end: 20151030
  16. VELCADE [Concomitant]
     Active Substance: BORTEZOMIB
     Dosage: DAYS 1 AND 4 Q7D AND 1 WEEK OFF Q14 D
     Route: 058
     Dates: start: 20190107, end: 20190304
  17. ALKERAN [Concomitant]
     Active Substance: MELPHALAN
     Indication: Product used for unknown indication
     Dosage: ONCE
     Route: 042
     Dates: start: 20160130, end: 20160130
  18. CYTOXAN [Concomitant]
     Active Substance: CYCLOPHOSPHAMIDE
     Indication: Product used for unknown indication
     Route: 048
     Dates: start: 20141215, end: 20150612
  19. CYTOXAN [Concomitant]
     Active Substance: CYCLOPHOSPHAMIDE
     Dosage: 3 DAYS
     Route: 042
     Dates: start: 20210820, end: 20210822
  20. CYTOXAN [Concomitant]
     Active Substance: CYCLOPHOSPHAMIDE
     Dosage: 24 HOURS CONTINUOUS INFUSION
     Route: 042
     Dates: start: 20220118, end: 20220120
  21. CYTOXAN [Concomitant]
     Active Substance: CYCLOPHOSPHAMIDE
     Dosage: DAYS 5 6 7 8
     Route: 042
     Dates: start: 20151120, end: 20160105
  22. CYTOXAN [Concomitant]
     Active Substance: CYCLOPHOSPHAMIDE
     Dosage: DAYS 1, 8, 15 Q 28 DAYS
     Route: 042
     Dates: start: 20190409, end: 20190911
  23. ADRIAMYCIN [Concomitant]
     Active Substance: DOXORUBICIN HYDROCHLORIDE
     Indication: Product used for unknown indication
     Dosage: DAYS 5 6 7 8
     Route: 042
     Dates: start: 20151105, end: 20160105
  24. DOXIL [Concomitant]
     Active Substance: DOXORUBICIN HYDROCHLORIDE
     Indication: Product used for unknown indication
     Route: 042
     Dates: start: 20220118, end: 20220120
  25. CISPLATIN [Concomitant]
     Active Substance: CISPLATIN
     Indication: Product used for unknown indication
     Dosage: DAYS 5, 6, 7, 8
     Route: 042
     Dates: start: 20151120, end: 20160105
  26. CISPLATIN [Concomitant]
     Active Substance: CISPLATIN
     Dosage: 24 HOURS INFUSION
     Route: 042
     Dates: start: 20220118, end: 20220120
  27. ETOPOSIDE [Concomitant]
     Active Substance: ETOPOSIDE
     Indication: Product used for unknown indication
     Dosage: DAY 5 6 7 8
     Route: 042
     Dates: start: 20151120, end: 20160105
  28. ETOPOSIDE [Concomitant]
     Active Substance: ETOPOSIDE
     Dosage: 24 HOURS INFUSION
     Route: 042
     Dates: start: 20220118, end: 20220120
  29. FLUDARABINE [Concomitant]
     Active Substance: FLUDARABINE PHOSPHATE
     Indication: Product used for unknown indication
     Dosage: DAILY 3 DAYS
     Route: 042
     Dates: start: 20210820, end: 20210822
  30. IDECABTAGENE VICLEUCEL [Concomitant]
     Active Substance: IDECABTAGENE VICLEUCEL
     Indication: Product used for unknown indication
     Dosage: DAILY 3 DAYS
     Route: 042
     Dates: start: 20210820, end: 20210822
  31. POMALIDOMIDE [Concomitant]
     Active Substance: POMALIDOMIDE
     Indication: Product used for unknown indication
     Dosage: DAY 1 TO 21 OF Q28
     Route: 048
     Dates: start: 20201204, end: 20210723
  32. EMPLICITI [Concomitant]
     Active Substance: ELOTUZUMAB
     Indication: Product used for unknown indication
     Route: 042
     Dates: start: 20201204, end: 20210125
  33. EMPLICITI [Concomitant]
     Active Substance: ELOTUZUMAB
     Dosage: Q 28 DAYS
     Route: 042
     Dates: start: 20210201, end: 20210723
  34. CARFILZOMIB [Concomitant]
     Active Substance: CARFILZOMIB
     Indication: Product used for unknown indication
     Dosage: 2 DOSE WEEKLY
     Route: 042
     Dates: start: 20151120, end: 20160105
  35. CARFILZOMIB [Concomitant]
     Active Substance: CARFILZOMIB
     Dosage: DAYS 1 3 7 11
     Route: 042
     Dates: start: 20160316, end: 20160426
  36. CARFILZOMIB [Concomitant]
     Active Substance: CARFILZOMIB
     Route: 042
     Dates: start: 20190409, end: 20190410
  37. CARFILZOMIB [Concomitant]
     Active Substance: CARFILZOMIB
     Dosage: DAYS 1 AND 4 Q7D AND 1 WEEK OFF Q14 D
     Route: 042
     Dates: start: 20190416, end: 20190424
  38. CARFILZOMIB [Concomitant]
     Active Substance: CARFILZOMIB
     Route: 042
     Dates: start: 20190507, end: 20190523
  39. CARFILZOMIB [Concomitant]
     Active Substance: CARFILZOMIB
     Route: 042
     Dates: start: 20191002, end: 20191115
  40. CARFILZOMIB [Concomitant]
     Active Substance: CARFILZOMIB
     Route: 042
     Dates: start: 20190507, end: 20190523

REACTIONS (3)
  - Hypotension [Recovering/Resolving]
  - Tachycardia [Recovering/Resolving]
  - Intentional product use issue [Unknown]

NARRATIVE: CASE EVENT DATE: 20220317
